FAERS Safety Report 25029373 (Version 1)
Quarter: 2025Q1

REPORT INFORMATION
  Report Type: Spontaneous
  Country: US (occurrence: US)
  Receive Date: 20250303
  Receipt Date: 20250303
  Transmission Date: 20250408
  Serious: Yes (Other)
  Sender: CSL BEHRING
  Company Number: US-BEH-2025196998

PATIENT
  Sex: Female
  Weight: 56.689 kg

DRUGS (6)
  1. PRIVIGEN [Suspect]
     Active Substance: HUMAN IMMUNOGLOBULIN G
     Indication: Immunodeficiency common variable
     Route: 042
  2. PRIVIGEN [Suspect]
     Active Substance: HUMAN IMMUNOGLOBULIN G
     Route: 065
     Dates: start: 202408
  3. PRIVIGEN [Suspect]
     Active Substance: HUMAN IMMUNOGLOBULIN G
     Route: 065
     Dates: start: 202409
  4. PRIVIGEN [Suspect]
     Active Substance: HUMAN IMMUNOGLOBULIN G
     Route: 065
     Dates: start: 202410
  5. PRIVIGEN [Suspect]
     Active Substance: HUMAN IMMUNOGLOBULIN G
     Route: 065
     Dates: start: 202411
  6. GAMUNEX-C [Suspect]
     Active Substance: HUMAN IMMUNOGLOBULIN G
     Indication: Product used for unknown indication
     Route: 065

REACTIONS (1)
  - Hypersensitivity [Recovering/Resolving]
